FAERS Safety Report 6697541-3 (Version None)
Quarter: 2010Q2

REPORT INFORMATION
  Report Type: 
  Country: None (occurrence: None)
  Receive Date: 20100421
  Receipt Date: 20090527
  Transmission Date: 20101027
  Serious: Yes (Hospitalization)
  Sender: FDA-Public Use
  Company Number: 20090203

PATIENT
  Age: 32 Year
  Sex: Female

DRUGS (7)
  1. DEXFERRUM [Suspect]
     Indication: ANAEMIA
     Dosage: 5 MG / 25 MG TEST DOSE, INTRAVENOUS
     Route: 042
     Dates: start: 20090514, end: 20090514
  2. BENADRYL [Concomitant]
  3. EPINEPHRINE [Concomitant]
  4. FERROUS SULFATE TAB [Concomitant]
  5. NITROGLYCERIN [Concomitant]
  6. PACKED RED BLOOD CELL TRANSFUSION [Concomitant]
  7. METOPROLOL TARTRATE [Concomitant]

REACTIONS (2)
  - ANAPHYLACTOID REACTION [None]
  - ATRIAL FIBRILLATION [None]
